FAERS Safety Report 23442025 (Version 1)
Quarter: 2024Q1

REPORT INFORMATION
  Report Type: Spontaneous
  Country: RS (occurrence: RS)
  Receive Date: 20240125
  Receipt Date: 20240125
  Transmission Date: 20240410
  Serious: Yes (Other)
  Sender: FDA-Public Use
  Company Number: RS-Accord-402683

PATIENT
  Age: 24 Year
  Sex: Male

DRUGS (3)
  1. CISPLATIN [Suspect]
     Active Substance: CISPLATIN
     Indication: Prostate cancer
  2. ETOPOSIDE [Suspect]
     Active Substance: ETOPOSIDE
     Indication: Prostate cancer
  3. IFOSFAMIDE [Suspect]
     Active Substance: IFOSFAMIDE
     Indication: Prostate cancer

REACTIONS (2)
  - Acute kidney injury [Unknown]
  - Off label use [Unknown]
